FAERS Safety Report 20083475 (Version 2)
Quarter: 2022Q1

REPORT INFORMATION
  Report Type: Report from Study
  Country: CA (occurrence: CA)
  Receive Date: 20211118
  Receipt Date: 20220216
  Transmission Date: 20220423
  Serious: Yes (Hospitalization)
  Sender: FDA-Public Use
  Company Number: CA-BEH-2021138102

PATIENT
  Age: 30 Year
  Sex: Female
  Weight: 81.6 kg

DRUGS (13)
  1. BERINERT [Suspect]
     Active Substance: HUMAN C1-ESTERASE INHIBITOR
     Indication: Hereditary angioedema with normal C1 esterase inhibitor
     Dosage: 1000 INTERNATIONAL UNIT, TIW
     Route: 042
     Dates: start: 20201225
  2. BERINERT [Suspect]
     Active Substance: HUMAN C1-ESTERASE INHIBITOR
     Indication: Hereditary angioedema with normal C1 esterase inhibitor
     Dosage: 1000 INTERNATIONAL UNIT, TIW
     Route: 042
     Dates: start: 20201225
  3. BERINERT [Suspect]
     Active Substance: HUMAN C1-ESTERASE INHIBITOR
     Indication: Prophylaxis
  4. BERINERT [Suspect]
     Active Substance: HUMAN C1-ESTERASE INHIBITOR
     Indication: Prophylaxis
  5. BERINERT [Suspect]
     Active Substance: HUMAN C1-ESTERASE INHIBITOR
     Indication: Hereditary angioedema with normal C1 esterase inhibitor
     Dosage: 1500 INTERNATIONAL UNIT, TIW
     Route: 042
     Dates: start: 20201225
  6. BERINERT [Suspect]
     Active Substance: HUMAN C1-ESTERASE INHIBITOR
     Indication: Hereditary angioedema with normal C1 esterase inhibitor
     Dosage: 1500 INTERNATIONAL UNIT, TIW
     Route: 042
     Dates: start: 20201225
  7. BERINERT [Suspect]
     Active Substance: HUMAN C1-ESTERASE INHIBITOR
     Indication: Prophylaxis
  8. BERINERT [Suspect]
     Active Substance: HUMAN C1-ESTERASE INHIBITOR
     Indication: Prophylaxis
  9. OXYGEN [Concomitant]
     Active Substance: OXYGEN
  10. FIRAZYR [Concomitant]
     Active Substance: ICATIBANT ACETATE
     Indication: Hereditary angioedema
     Dosage: UNK, PRN
     Route: 065
  11. FIRAZYR [Concomitant]
     Active Substance: ICATIBANT ACETATE
     Indication: Abdominal distension
  12. FIRAZYR [Concomitant]
     Active Substance: ICATIBANT ACETATE
     Indication: Pharyngeal swelling
  13. TRANEXAMIC ACID [Concomitant]
     Active Substance: TRANEXAMIC ACID
     Dosage: UNK

REACTIONS (5)
  - Tooth infection [Unknown]
  - Sepsis [Unknown]
  - Thrombosis [Unknown]
  - No adverse event [Unknown]
  - Off label use [Unknown]
